FAERS Safety Report 11099885 (Version 1)
Quarter: 2015Q2

REPORT INFORMATION
  Report Type: Spontaneous
  Country: IT (occurrence: None)
  Receive Date: 20150506
  Receipt Date: 20150506
  Transmission Date: 20150821
  Serious: Yes (Hospitalization)
  Sender: FDA-Public Use
  Company Number: 2015PL000087

PATIENT
  Age: 31 Year
  Sex: Male

DRUGS (5)
  1. ETHAMBUTOL [Concomitant]
     Active Substance: ETHAMBUTOL HYDROCHLORIDE
  2. PYRAZINAMIDE (PYRAZINAMIDE) [Concomitant]
     Active Substance: PYRAZINAMIDE
  3. ALLOPURINOL (ALLOPURINOL) TABLET [Suspect]
     Active Substance: ALLOPURINOL
     Indication: HYPERURICAEMIA
  4. RIFAMPICIN (RIFAMPICIN) [Concomitant]
     Active Substance: RIFAMPIN
  5. ISONIAZID (ISONIAZID) [Concomitant]
     Active Substance: ISONIAZID

REACTIONS (4)
  - Coma [None]
  - Vasculitis cerebral [None]
  - Hemiplegia [None]
  - Drug reaction with eosinophilia and systemic symptoms [None]
